FAERS Safety Report 24217870 (Version 2)
Quarter: 2024Q3

REPORT INFORMATION
  Report Type: Spontaneous
  Country: FR (occurrence: FR)
  Receive Date: 20240816
  Receipt Date: 20240902
  Transmission Date: 20241016
  Serious: Yes (Hospitalization, Other)
  Sender: ORGANON
  Company Number: FR-ORGANON-O2407FRA002601

PATIENT
  Age: 80 Year
  Sex: Female

DRUGS (3)
  1. SINEMET [Suspect]
     Active Substance: CARBIDOPA\LEVODOPA
     Dosage: 100 MILLIGRAM,EVERY 2 TO 3 HOURS
     Route: 048
     Dates: start: 202212
  2. SINEMET [Suspect]
     Active Substance: CARBIDOPA\LEVODOPA
     Dosage: DOSAGE WAS INCREASED BY 50%
     Route: 048
  3. OMEPRAZOLE [Concomitant]
     Active Substance: OMEPRAZOLE
     Dosage: UNK

REACTIONS (7)
  - Bradycardia [Unknown]
  - Dystonia [Not Recovered/Not Resolved]
  - Condition aggravated [Unknown]
  - Hyperhidrosis [Not Recovered/Not Resolved]
  - Dysphagia [Unknown]
  - Product coating issue [Unknown]
  - Product prescribing issue [Unknown]

NARRATIVE: CASE EVENT DATE: 20240201
